FAERS Safety Report 20109950 (Version 1)
Quarter: 2021Q4

REPORT INFORMATION
  Report Type: Spontaneous
  Country: US (occurrence: None)
  Receive Date: 20211124
  Receipt Date: 20211124
  Transmission Date: 20220303
  Serious: No
  Sender: FDA-Public Use
  Company Number: None

PATIENT
  Age: 61 Year
  Sex: Female
  Weight: 67.59 kg

DRUGS (2)
  1. IMDEVIMAB [Suspect]
     Active Substance: IMDEVIMAB
     Indication: COVID-19
     Dosage: FREQUENCY : ONCE;?
     Route: 042
     Dates: start: 20211116
  2. CASIRIVIMAB [Suspect]
     Active Substance: CASIRIVIMAB
     Indication: COVID-19
     Dosage: FREQUENCY : ONCE;?
     Route: 042
     Dates: start: 20211116

REACTIONS (7)
  - Infusion related reaction [None]
  - Flushing [None]
  - Dyspnoea [None]
  - Nausea [None]
  - Abdominal pain lower [None]
  - Groin pain [None]
  - Oxygen saturation decreased [None]

NARRATIVE: CASE EVENT DATE: 20211116
